FAERS Safety Report 8909383 (Version 10)
Quarter: 2013Q4

REPORT INFORMATION
  Report Type: Report from Study
  Country: IT (occurrence: IT)
  Receive Date: 20121115
  Receipt Date: 20131231
  Transmission Date: 20140711
  Serious: Yes (Life-Threatening, Hospitalization, Other)
  Sender: FDA-Public Use
  Company Number: IT-CELGENEUS-083-21880-12111226

PATIENT
  Age: 60 Year
  Sex: Male

DRUGS (3)
  1. REVLIMID [Suspect]
     Indication: MANTLE CELL LYMPHOMA
     Dosage: 15 MILLIGRAM
     Route: 048
     Dates: start: 20120213, end: 20121017
  2. CARDIOASPIRINE [Concomitant]
     Indication: THROMBOSIS PROPHYLAXIS
     Route: 065
     Dates: start: 20120305
  3. CARDIOASPIRINE [Concomitant]
     Route: 065
     Dates: start: 20121030

REACTIONS (3)
  - Guillain-Barre syndrome [Recovered/Resolved]
  - Leukopenia [Recovered/Resolved]
  - Guillain-Barre syndrome [Recovered/Resolved]
